FAERS Safety Report 22340342 (Version 1)
Quarter: 2023Q2

REPORT INFORMATION
  Report Type: Spontaneous
  Country: GB (occurrence: None)
  Receive Date: 20230518
  Receipt Date: 20230518
  Transmission Date: 20230722
  Serious: Yes (Hospitalization, Other)
  Sender: FDA-Public Use
  Company Number: GB-Merck Healthcare KGaA-9402020

PATIENT
  Age: 42 Year
  Sex: Female

DRUGS (1)
  1. TEPOTINIB [Suspect]
     Active Substance: TEPOTINIB
     Indication: Lung neoplasm malignant

REACTIONS (4)
  - Fall [Unknown]
  - Neutropenic sepsis [Unknown]
  - Rash erythematous [Unknown]
  - Generalised oedema [Not Recovered/Not Resolved]
